FAERS Safety Report 25416027 (Version 2)
Quarter: 2025Q4

REPORT INFORMATION
  Report Type: Spontaneous
  Country: BR (occurrence: BR)
  Receive Date: 20250610
  Receipt Date: 20251002
  Transmission Date: 20260117
  Serious: Yes (Life-Threatening, Hospitalization)
  Sender: BIOGEN
  Company Number: BR-BIOGEN-2021BI01018571

PATIENT
  Age: 53 Year
  Sex: Male
  Weight: 77 kg

DRUGS (5)
  1. TYSABRI [Suspect]
     Active Substance: NATALIZUMAB
     Indication: Multiple sclerosis
     Route: 050
     Dates: start: 201903
  2. AMITRIPTYLINE [Concomitant]
     Active Substance: AMITRIPTYLINE
     Indication: Anxiety
     Route: 050
     Dates: start: 2000, end: 202502
  3. CALMASYN [Concomitant]
     Indication: Insomnia
     Route: 050
     Dates: start: 202503
  4. MELATONIN [Concomitant]
     Active Substance: MELATONIN
     Indication: Insomnia
     Route: 050
     Dates: start: 202502
  5. TRYPTOPHAN [Concomitant]
     Active Substance: TRYPTOPHAN
     Indication: Insomnia
     Route: 050
     Dates: start: 202503

REACTIONS (7)
  - Multiple sclerosis relapse [Recovered/Resolved]
  - Suicidal ideation [Recovered/Resolved]
  - Homicidal ideation [Unknown]
  - Fear [Unknown]
  - Depressed mood [Recovered/Resolved]
  - Anxiety [Unknown]
  - Pyrexia [Recovered/Resolved]

NARRATIVE: CASE EVENT DATE: 20190301
